FAERS Safety Report 7273004-1 (Version None)
Quarter: 2011Q1

REPORT INFORMATION
  Report Type: 
  Country: None (occurrence: None)
  Receive Date: 20110203
  Receipt Date: 20110126
  Transmission Date: 20110831
  Serious: Yes (Other)
  Sender: FDA-Public Use
  Company Number: B0667737A

PATIENT
  Sex: Male

DRUGS (2)
  1. SULPIRIDE [Concomitant]
     Indication: AFFECTIVE DISORDER
     Dosage: 150MG PER DAY
     Route: 048
     Dates: start: 20090511, end: 20090528
  2. PAXIL [Suspect]
     Indication: ANXIETY
     Dosage: 10MG PER DAY
     Route: 048
     Dates: start: 20090511, end: 20090528

REACTIONS (4)
  - FEELING JITTERY [None]
  - MOOD ALTERED [None]
  - ANXIETY [None]
  - ACTIVATION SYNDROME [None]
